FAERS Safety Report 21826457 (Version 2)
Quarter: 2023Q1

REPORT INFORMATION
  Report Type: Other
  Country: GB (occurrence: GB)
  Receive Date: 20230106
  Receipt Date: 20230120
  Transmission Date: 20230418
  Serious: Yes (Life-Threatening, Hospitalization, Disabling, Other)
  Sender: FDA-Public Use
  Company Number: None

PATIENT
  Age: 38 Year
  Sex: Male
  Weight: 88 kg

DRUGS (1)
  1. SERTRALINE [Suspect]
     Active Substance: SERTRALINE HYDROCHLORIDE
     Indication: Stress at work
     Dosage: UNK, 4 YEAR SEVERE WITHDRAWAL TAPER ;
     Route: 065
     Dates: start: 20170916, end: 20220914

REACTIONS (17)
  - Atrial fibrillation [Unknown]
  - Akathisia [Recovered/Resolved with Sequelae]
  - Fatigue [Recovered/Resolved with Sequelae]
  - Medication error [Unknown]
  - Insomnia [Unknown]
  - Vomiting [Unknown]
  - Weight increased [Unknown]
  - Ventricular extrasystoles [Unknown]
  - Influenza [Unknown]
  - Tinnitus [Unknown]
  - Withdrawal syndrome [Unknown]
  - Temperature regulation disorder [Not Recovered/Not Resolved]
  - Poor quality sleep [Unknown]
  - Emotional distress [Not Recovered/Not Resolved]
  - Exercise tolerance decreased [Not Recovered/Not Resolved]
  - Bedridden [Unknown]
  - Somnolence [Unknown]

NARRATIVE: CASE EVENT DATE: 20180916
